FAERS Safety Report 5101244-6 (Version None)
Quarter: 2006Q3

REPORT INFORMATION
  Report Type: 
  Country: None (occurrence: None)
  Receive Date: 20060906
  Receipt Date: 20060825
  Transmission Date: 20061208
  Serious: No
  Sender: FDA-Public Use
  Company Number: E3810-00104-SPO-AU

PATIENT
  Sex: Male

DRUGS (1)
  1. PARIET (RABEPRAZOLE) (RABEPRAZOLE  SODIUM) [Suspect]
     Dosage: 20 G, 1 IN 1 D, ORAL
     Route: 048

REACTIONS (1)
  - RENAL FAILURE [None]
